FAERS Safety Report 8195934-9 (Version None)
Quarter: 2012Q1

REPORT INFORMATION
  Report Type: 
  Country: None (occurrence: None)
  Receive Date: 20120308
  Receipt Date: 20120305
  Transmission Date: 20120608
  Serious: Yes (Other)
  Sender: FDA-Public Use
  Company Number: US-AMGEN-USASP2011070042

PATIENT
  Sex: Female
  Weight: 2.721 kg

DRUGS (1)
  1. ENBREL [Suspect]
     Dosage: 50 UNK, UNK
     Dates: start: 20050313

REACTIONS (1)
  - PREMATURE BABY [None]
